FAERS Safety Report 5877138-5 (Version None)
Quarter: 2008Q3

REPORT INFORMATION
  Report Type: 
  Country: None (occurrence: None)
  Receive Date: 20080908
  Receipt Date: 20080908
  Transmission Date: 20090109
  Serious: Yes (Life-Threatening, Other)
  Sender: FDA-Public Use
  Company Number: None

PATIENT
  Age: 28 Year
  Sex: Female
  Weight: 83.9154 kg

DRUGS (1)
  1. CHANTIX [Suspect]
     Indication: SMOKING CESSATION THERAPY
     Dosage: 1 DAILY PO, DAILY
     Route: 048
     Dates: start: 20060901, end: 20061115

REACTIONS (5)
  - ABNORMAL BEHAVIOUR [None]
  - DRUG INEFFECTIVE [None]
  - FEELING ABNORMAL [None]
  - NIGHTMARE [None]
  - SUICIDAL IDEATION [None]
